FAERS Safety Report 11698429 (Version 1)
Quarter: 2015Q4

REPORT INFORMATION
  Report Type: Spontaneous
  Country: CA (occurrence: CA)
  Receive Date: 20151104
  Receipt Date: 20151104
  Transmission Date: 20160304
  Serious: Yes (Other)
  Sender: FDA-Public Use
  Company Number: CA-TEVA-605650ACC

PATIENT
  Age: 48 Year
  Sex: Female

DRUGS (5)
  1. CIPROFLOXACIN INJECTION USP [Suspect]
     Active Substance: CIPROFLOXACIN
     Indication: APPENDICITIS
  2. OXYCODONE [Concomitant]
     Active Substance: OXYCODONE
  3. METRONIDAZOLE. [Concomitant]
     Active Substance: METRONIDAZOLE
  4. NAPROXEN. [Concomitant]
     Active Substance: NAPROXEN
  5. CIPROFLOXACIN INJECTION USP [Suspect]
     Active Substance: CIPROFLOXACIN
     Indication: GASTRIC INFECTION
     Dosage: 800 MILLIGRAM DAILY;
     Route: 042

REACTIONS (3)
  - Injection site erythema [Recovered/Resolved]
  - Pruritus [Recovered/Resolved]
  - Erythema [Recovered/Resolved]
